FAERS Safety Report 10141964 (Version 1)
Quarter: 2014Q2

REPORT INFORMATION
  Report Type: Spontaneous
  Country: US (occurrence: US)
  Receive Date: 20140429
  Receipt Date: 20140429
  Transmission Date: 20141212
  Serious: No
  Sender: FDA-Public Use
  Company Number: US-ASTRAZENECA-2014SE26495

PATIENT
  Age: 65 Year
  Sex: Female
  Weight: 95.3 kg

DRUGS (6)
  1. PULMICORT FLEXHALER [Suspect]
     Indication: ASTHMA
     Dosage: 180 MCG, 1 PUFFS, TWO TIMES A DAY
     Route: 055
  2. PULMICORT FLEXHALER [Suspect]
     Indication: ASTHMA
     Route: 055
  3. TRAZODONE [Concomitant]
     Indication: FIBROMYALGIA
     Dosage: HALF TABLET DAILY
     Route: 048
  4. CYMBALTA [Concomitant]
     Indication: FIBROMYALGIA
     Route: 048
  5. PREDNISONE EYEDROPS [Concomitant]
     Indication: CORNEAL TRANSPLANT
     Dosage: ONE DROP PER EYE BID
     Route: 050
  6. BRIMONIDINE [Concomitant]
     Indication: ABNORMAL SENSATION IN EYE
     Dosage: 1 DROP IN LEFT EYE DAILY
     Route: 050

REACTIONS (2)
  - Cough [Not Recovered/Not Resolved]
  - Drug ineffective [Not Recovered/Not Resolved]
